FAERS Safety Report 24709459 (Version 1)
Quarter: 2024Q4

REPORT INFORMATION
  Report Type: Spontaneous
  Country: US (occurrence: US)
  Receive Date: 20241209
  Receipt Date: 20241209
  Transmission Date: 20250114
  Serious: Yes (Other)
  Sender: NOVO NORDISK
  Company Number: US-NOVOPROD-1329139

PATIENT
  Age: 64 Year
  Sex: Female

DRUGS (1)
  1. OZEMPIC [Suspect]
     Active Substance: SEMAGLUTIDE
     Indication: Type 2 diabetes mellitus
     Dosage: 1 MG, QW
     Route: 058
     Dates: start: 202401

REACTIONS (3)
  - Cataract operation [Unknown]
  - Cataract operation [Unknown]
  - Illness [Unknown]

NARRATIVE: CASE EVENT DATE: 20240912
